FAERS Safety Report 6859571-8 (Version None)
Quarter: 2010Q3

REPORT INFORMATION
  Report Type: 
  Country: None (occurrence: None)
  Receive Date: 20100719
  Receipt Date: 20080806
  Transmission Date: 20110219
  Serious: No
  Sender: FDA-Public Use
  Company Number: US-PFIZER INC-2008016413

PATIENT
  Sex: Female
  Weight: 72.7 kg

DRUGS (7)
  1. CHANTIX [Suspect]
     Indication: SMOKING CESSATION THERAPY
     Route: 048
     Dates: start: 20070601
  2. TRICOR [Concomitant]
  3. SYNTHROID [Concomitant]
     Indication: THYROID DISORDER
  4. VICODIN [Concomitant]
  5. VALIUM [Concomitant]
  6. CYMBALTA [Concomitant]
  7. WELLBUTRIN [Concomitant]

REACTIONS (4)
  - ABNORMAL DREAMS [None]
  - HEADACHE [None]
  - INAPPROPRIATE SCHEDULE OF DRUG ADMINISTRATION [None]
  - POOR QUALITY SLEEP [None]
